FAERS Safety Report 11147995 (Version 2)
Quarter: 2015Q3

REPORT INFORMATION
  Report Type: Spontaneous
  Country: US (occurrence: US)
  Receive Date: 20150529
  Receipt Date: 20150806
  Transmission Date: 20151125
  Serious: No
  Sender: FDA-Public Use
  Company Number: US-AMGEN-USASP2015051223

PATIENT
  Age: 64 Year
  Sex: Female

DRUGS (2)
  1. ENBREL [Suspect]
     Active Substance: ETANERCEPT
     Indication: RHEUMATOID ARTHRITIS
     Dosage: 50 MG, QWK
     Route: 058
     Dates: start: 201502
  2. ENBREL [Suspect]
     Active Substance: ETANERCEPT
     Dosage: UNK
     Route: 058

REACTIONS (4)
  - Fluid retention [Unknown]
  - Activities of daily living impaired [Unknown]
  - Fatigue [Unknown]
  - Dyspnoea [Unknown]

NARRATIVE: CASE EVENT DATE: 2015
